FAERS Safety Report 9889281 (Version 1)
Quarter: 2014Q1

REPORT INFORMATION
  Report Type: Spontaneous
  Country: IT (occurrence: IT)
  Receive Date: 20140211
  Receipt Date: 20140211
  Transmission Date: 20141002
  Serious: Yes (Hospitalization)
  Sender: FDA-Public Use
  Company Number: IT-TEVA-460126ISR

PATIENT
  Age: 61 Year
  Sex: Male

DRUGS (8)
  1. METFORMINA CLORIDRATO [Suspect]
     Indication: DIABETES MELLITUS
     Dosage: 2000 MILLIGRAM DAILY;
     Route: 048
     Dates: start: 20130101, end: 20131206
  2. GLICLAZIDE [Suspect]
     Indication: DIABETES MELLITUS
     Dosage: 100 MILLIGRAM DAILY;
     Route: 048
     Dates: start: 20130101, end: 20131206
  3. CARDIOASPIRIN 100 MG [Concomitant]
     Dosage: 100 MILLIGRAM DAILY;
     Dates: start: 20120101, end: 20131206
  4. PLAVIX 75 MG [Concomitant]
     Dosage: 75 MILLIGRAM DAILY;
     Route: 048
     Dates: start: 20120101, end: 20131206
  5. NITRODERM TTS15MG/DIE [Concomitant]
     Dosage: 15 MILLIGRAM DAILY;
     Route: 062
     Dates: start: 20131113, end: 20131206
  6. XIPOCOL 20 MG [Concomitant]
     Dosage: 20 MILLIGRAM DAILY;
     Route: 048
     Dates: start: 20131123, end: 20131206
  7. RAMIPRIL [Concomitant]
     Indication: HYPERTENSION
     Dosage: 5 MILLIGRAM DAILY;
     Route: 048
     Dates: start: 20120101, end: 20131206
  8. CARVEDILOLO [Concomitant]
     Indication: HYPERTENSION
     Dosage: 6.25 MILLIGRAM DAILY;
     Route: 048
     Dates: start: 20120101, end: 20131206

REACTIONS (3)
  - Hypoglycaemia [Recovered/Resolved]
  - Bradyphrenia [Recovered/Resolved]
  - Aphasia [Recovered/Resolved]
